FAERS Safety Report 11236409 (Version 1)
Quarter: 2015Q3

REPORT INFORMATION
  Report Type: Report from Study
  Country: US (occurrence: US)
  Receive Date: 20150702
  Receipt Date: 20150702
  Transmission Date: 20151125
  Serious: Yes (Hospitalization)
  Sender: FDA-Public Use
  Company Number: US-ACTELION-A-US2015-120078

PATIENT
  Age: 88 Year
  Sex: Female

DRUGS (2)
  1. MACITENTAN [Suspect]
     Active Substance: MACITENTAN
     Indication: PULMONARY HYPERTENSION
     Dosage: 10 MG, QD
     Route: 048
     Dates: start: 20140909
  2. RIOCIGUAT [Concomitant]
     Active Substance: RIOCIGUAT

REACTIONS (5)
  - Malaise [Unknown]
  - Nasal congestion [Unknown]
  - Abdominal pain upper [Unknown]
  - Vomiting [Unknown]
  - Hypotension [Unknown]

NARRATIVE: CASE EVENT DATE: 20150623
